FAERS Safety Report 13839072 (Version 1)
Quarter: 2017Q3

REPORT INFORMATION
  Report Type: Report from Study
  Country: US (occurrence: US)
  Receive Date: 20170807
  Receipt Date: 20170807
  Transmission Date: 20171127
  Serious: No
  Sender: FDA-Public Use
  Company Number: US-ALEXION PHARMACEUTICALS INC.-A201708827

PATIENT
  Sex: Male

DRUGS (1)
  1. SOLIRIS [Suspect]
     Active Substance: ECULIZUMAB
     Indication: HAEMOLYTIC URAEMIC SYNDROME
     Dosage: UNK
     Route: 042
     Dates: end: 20140107

REACTIONS (5)
  - Haemoglobin abnormal [Unknown]
  - Weight increased [Recovering/Resolving]
  - Swelling [Recovering/Resolving]
  - Blood creatinine abnormal [Unknown]
  - Platelet count abnormal [Unknown]
